FAERS Safety Report 15000166 (Version 1)
Quarter: 2018Q2

REPORT INFORMATION
  Report Type: Report from Study
  Country: US (occurrence: US)
  Receive Date: 20180612
  Receipt Date: 20180612
  Transmission Date: 20180711
  Serious: Yes (Hospitalization)
  Sender: FDA-Public Use
  Company Number: US-AMGEN-USACT2018031985

PATIENT
  Age: 20 Year
  Sex: Female

DRUGS (18)
  1. VANCOMYCIN [Concomitant]
     Active Substance: VANCOMYCIN
     Indication: STAPHYLOCOCCAL INFECTION
     Dosage: UNK
  2. BLINATUMOMAB [Suspect]
     Active Substance: BLINATUMOMAB
     Dosage: UNK
     Route: 065
     Dates: start: 20180123
  3. IMMUNOGLOBULIN HUMAN NORMAL [Concomitant]
     Active Substance: HUMAN IMMUNOGLOBULIN G
     Dosage: UNK
     Route: 042
  4. DEXAMETHASONE. [Suspect]
     Active Substance: DEXAMETHASONE
     Indication: B PRECURSOR TYPE ACUTE LEUKAEMIA
     Dosage: 3 MG/M2, BID
     Route: 065
  5. CYTARABINE. [Suspect]
     Active Substance: CYTARABINE
     Indication: B PRECURSOR TYPE ACUTE LEUKAEMIA
     Dosage: 50 MG/M2, UNK
     Route: 042
  6. METHOTREXATE. [Suspect]
     Active Substance: METHOTREXATE
     Dosage: 25 MG/M2, Q6H
     Route: 065
  7. BLINATUMOMAB [Suspect]
     Active Substance: BLINATUMOMAB
     Dosage: 48 MCG AT 5ML/HR, UNK
     Route: 042
     Dates: start: 20180102
  8. METHOTREXATE. [Suspect]
     Active Substance: METHOTREXATE
     Dosage: 20 MG/M2, UNK
     Route: 048
  9. CYCLOPHOSPHAMIDE. [Suspect]
     Active Substance: CYCLOPHOSPHAMIDE
     Dosage: 300 MG/M2, UNK
     Route: 042
  10. ETOPOSIDE. [Suspect]
     Active Substance: ETOPOSIDE
     Indication: B PRECURSOR TYPE ACUTE LEUKAEMIA
     Dosage: 100 MG/M2, UNK
     Route: 042
  11. VINCRISTINE [Suspect]
     Active Substance: VINCRISTINE
     Indication: B PRECURSOR TYPE ACUTE LEUKAEMIA
     Dosage: 1.5 MG/M2, UNK
     Route: 042
  12. CYCLOPHOSPHAMIDE. [Suspect]
     Active Substance: CYCLOPHOSPHAMIDE
     Indication: B PRECURSOR TYPE ACUTE LEUKAEMIA
     Dosage: 440 MG/M2, UNK
     Route: 042
  13. MERCAPTOPURINE. [Suspect]
     Active Substance: MERCAPTOPURINE
     Indication: B PRECURSOR TYPE ACUTE LEUKAEMIA
     Dosage: 75 MG/M2, UNK
     Route: 048
  14. THIOGUANINE [Suspect]
     Active Substance: THIOGUANINE
     Indication: B PRECURSOR TYPE ACUTE LEUKAEMIA
     Dosage: 40 MG/M2, QD
     Route: 048
  15. BLINATUMOMAB [Suspect]
     Active Substance: BLINATUMOMAB
     Indication: B PRECURSOR TYPE ACUTE LEUKAEMIA
     Dosage: 15 MCG/M2, QD
     Route: 042
     Dates: start: 20170616
  16. ETOPOSIDE. [Suspect]
     Active Substance: ETOPOSIDE
     Dosage: 150 MG/M2, UNK
     Route: 042
  17. METHOTREXATE. [Suspect]
     Active Substance: METHOTREXATE
     Indication: B PRECURSOR TYPE ACUTE LEUKAEMIA
     Dosage: 1000 MG/M2, UNK
     Route: 042
  18. PEGASPARGASE [Suspect]
     Active Substance: PEGASPARGASE
     Indication: B PRECURSOR TYPE ACUTE LEUKAEMIA
     Dosage: 2500 IU/M2, UNK
     Route: 042

REACTIONS (3)
  - Pleural effusion [Recovering/Resolving]
  - Lung infection [Unknown]
  - Pyrexia [Unknown]

NARRATIVE: CASE EVENT DATE: 20180102
